FAERS Safety Report 7785987-1 (Version None)
Quarter: 2011Q3

REPORT INFORMATION
  Report Type: 
  Country: None (occurrence: None)
  Receive Date: 20110929
  Receipt Date: 20110707
  Transmission Date: 20111222
  Serious: No
  Sender: FDA-Public Use
  Company Number: US-BAYER-2011-060000

PATIENT
  Age: 72 Year
  Sex: Female
  Weight: 59 kg

DRUGS (2)
  1. ALEVE (CAPLET) [Suspect]
     Indication: PROCEDURAL PAIN
     Dosage: 2 TABLETS EVERY 12 HOURS - 130 COUNT
     Dates: start: 20110706
  2. VIVELLE [Concomitant]

REACTIONS (1)
  - INITIAL INSOMNIA [None]
